FAERS Safety Report 21145237 (Version 1)
Quarter: 2022Q3

REPORT INFORMATION
  Report Type: Report from Study
  Country: US (occurrence: US)
  Receive Date: 20220729
  Receipt Date: 20220729
  Transmission Date: 20221027
  Serious: No
  Sender: FDA-Public Use
  Company Number: US-ACADIA PHARMACEUTICALS INC.-ACA-2022-PIM-002271

PATIENT
  Age: 68 Year
  Sex: Male

DRUGS (8)
  1. NUPLAZID [Suspect]
     Active Substance: PIMAVANSERIN TARTRATE
     Indication: Parkinson^s disease psychosis
     Dosage: 34 MILLIGRAM, QD
     Route: 048
     Dates: start: 20220502, end: 20220622
  2. NUPLAZID [Suspect]
     Active Substance: PIMAVANSERIN TARTRATE
     Indication: Hallucination
  3. NUPLAZID [Suspect]
     Active Substance: PIMAVANSERIN TARTRATE
     Indication: Delusion
  4. MYCOSTATIN [Concomitant]
     Active Substance: NYSTATIN
     Dosage: 1 APPLICATION TO AFFTECTED AREA THREE TIMES DAILY FOR 14 DAYS
  5. SEROQUEL [Concomitant]
     Active Substance: QUETIAPINE FUMARATE
     Dosage: 50 MILLIGRAM, 1 TABLET BY MOUTH EVERY MORNING AND 1.5 TABLET EVERY EVENING
     Route: 048
  6. EXELON [Concomitant]
     Active Substance: RIVASTIGMINE TARTRATE
     Dosage: 13.3 MG/24 HOUR, 1 PATCH TO SKIN DAILY
     Route: 061
  7. DESYREL [Concomitant]
     Active Substance: TRAZODONE HYDROCHLORIDE
     Dosage: 50 MILLIGRAM, 0.5 TO 1 TABLET AT BEDTIME AS NEEDED
     Route: 048
  8. COMIRNATY [Concomitant]
     Active Substance: TOZINAMERAN
     Indication: COVID-19 immunisation
     Dosage: 30 MCG/0.3 ML, BOOSTER INJECTION

REACTIONS (5)
  - Orthostatic hypotension [Unknown]
  - Mobility decreased [Unknown]
  - Hypersomnia [Unknown]
  - Paranoia [Unknown]
  - Hallucination [Unknown]

NARRATIVE: CASE EVENT DATE: 20220623
